FAERS Safety Report 16081170 (Version 2)
Quarter: 2022Q1

REPORT INFORMATION
  Report Type: Spontaneous
  Country: CA (occurrence: CA)
  Receive Date: 20190316
  Receipt Date: 20220321
  Transmission Date: 20220423
  Serious: Yes (Hospitalization, Other)
  Sender: FDA-Public Use
  Company Number: CA-AUROBINDO-AUR-APL-2019-012916

PATIENT
  Sex: Male

DRUGS (38)
  1. OLANZAPINE [Suspect]
     Active Substance: OLANZAPINE
     Indication: Schizophrenia
     Dosage: 20 MILLIGRAM, ONCE A DAY
     Route: 065
  2. OLANZAPINE [Suspect]
     Active Substance: OLANZAPINE
     Indication: Psychotic disorder
     Dosage: 40 MILLIGRAM, ONCE A DAY
     Route: 065
  3. OLANZAPINE [Suspect]
     Active Substance: OLANZAPINE
     Dosage: 15 MILLIGRAM, ONCE A DAY
     Route: 065
  4. ARIPIPRAZOLE [Suspect]
     Active Substance: ARIPIPRAZOLE
     Indication: Schizophrenia
     Dosage: 30 MILLIGRAM
     Route: 065
  5. CLOZAPINE [Suspect]
     Active Substance: CLOZAPINE
     Indication: Schizophrenia
     Dosage: 350 MILLIGRAM, ONCE A DAY
     Route: 065
  6. CLOZAPINE [Suspect]
     Active Substance: CLOZAPINE
     Dosage: 350 MILLIGRAM
     Route: 065
  7. FLUOXETINE [Suspect]
     Active Substance: FLUOXETINE HYDROCHLORIDE
     Indication: Schizophrenia
     Dosage: UNK
     Route: 065
  8. FLUOXETINE [Suspect]
     Active Substance: FLUOXETINE HYDROCHLORIDE
     Dosage: 80 MILLIGRAM
     Route: 065
  9. GABAPENTIN [Suspect]
     Active Substance: GABAPENTIN
     Indication: Schizophrenia
     Dosage: UNK
     Route: 065
  10. QUETIAPINE [Suspect]
     Active Substance: QUETIAPINE
     Indication: Schizophrenia
     Dosage: 600 MILLIGRAM
     Route: 065
  11. AMISULPRIDE [Suspect]
     Active Substance: AMISULPRIDE
     Indication: Schizophrenia
     Dosage: 30 MILLIGRAM
     Route: 065
  12. AMISULPRIDE [Suspect]
     Active Substance: AMISULPRIDE
     Dosage: 1200 MILLIGRAM
     Route: 065
  13. ASENAPINE MALEATE [Suspect]
     Active Substance: ASENAPINE MALEATE
     Indication: Schizophrenia
     Dosage: UNK
     Route: 065
  14. CLOMIPRAMINE [Suspect]
     Active Substance: CLOMIPRAMINE
     Indication: Schizophrenia
     Dosage: UNK
     Route: 065
  15. CLOMIPRAMINE [Suspect]
     Active Substance: CLOMIPRAMINE
     Dosage: 250 MILLIGRAM
     Route: 065
  16. FLUPENTIXOL [Suspect]
     Active Substance: FLUPENTIXOL
     Indication: Schizophrenia
     Dosage: UNK
     Route: 065
  17. FLUPENTIXOL [Suspect]
     Active Substance: FLUPENTIXOL
     Dosage: 6.0 MILLIGRAM
     Route: 065
  18. HALOPERIDOL [Suspect]
     Active Substance: HALOPERIDOL
     Indication: Schizophrenia
     Dosage: UNK
     Route: 065
  19. LITHIUM [Suspect]
     Active Substance: LITHIUM
     Indication: Affective disorder
     Dosage: 1800 MILLIGRAM, ONCE A DAY
     Route: 065
  20. LITHIUM [Suspect]
     Active Substance: LITHIUM
     Dosage: 2400 MILLIGRAM, ONCE A DAY
     Route: 065
  21. LITHIUM [Suspect]
     Active Substance: LITHIUM
     Dosage: 1050 MILLIGRAM, ONCE A DAY
     Route: 065
  22. LITHIUM CARBONATE [Suspect]
     Active Substance: LITHIUM CARBONATE
     Indication: Schizophrenia
     Dosage: UNK
     Route: 065
  23. LOXAPINE SUCCINATE [Suspect]
     Active Substance: LOXAPINE SUCCINATE
     Indication: Schizophrenia
     Dosage: UNK
     Route: 065
  24. LOXAPINE SUCCINATE [Suspect]
     Active Substance: LOXAPINE SUCCINATE
     Dosage: 200 MILLIGRAM
     Route: 065
  25. PERPHENAZINE [Suspect]
     Active Substance: PERPHENAZINE
     Indication: Schizophrenia
     Dosage: UNK
     Route: 065
  26. PERPHENAZINE [Suspect]
     Active Substance: PERPHENAZINE
     Indication: Schizophrenia
     Dosage: UNK
     Route: 065
  27. RISPERIDONE [Suspect]
     Active Substance: RISPERIDONE
     Indication: Schizophrenia
     Dosage: 3 MILLIGRAM, ONCE A DAY
     Route: 065
  28. RISPERIDONE [Suspect]
     Active Substance: RISPERIDONE
     Indication: Psychotic disorder
     Dosage: 8 MILLIGRAM, ONCE A DAY
     Route: 065
  29. RISPERIDONE [Suspect]
     Active Substance: RISPERIDONE
     Dosage: 3 MILLIGRAM, ONCE A DAY
     Route: 065
  30. RISPERIDONE [Suspect]
     Active Substance: RISPERIDONE
     Dosage: 4 MILLIGRAM, ONCE A DAY
     Route: 065
  31. SAPHRIS [Suspect]
     Active Substance: ASENAPINE MALEATE
     Indication: Schizophrenia
     Dosage: UNK
     Route: 065
  32. THIORIDAZINE [Suspect]
     Active Substance: THIORIDAZINE
     Indication: Schizophrenia
     Dosage: UNK
     Route: 065
  33. TRIFLUOPERAZINE [Suspect]
     Active Substance: TRIFLUOPERAZINE HYDROCHLORIDE
     Indication: Schizophrenia
     Dosage: UNK
     Route: 065
  34. ZIPRASIDONE [Suspect]
     Active Substance: ZIPRASIDONE
     Indication: Schizophrenia
     Dosage: UNK
     Route: 065
  35. ABILIFY [Concomitant]
     Active Substance: ARIPIPRAZOLE
     Indication: Product used for unknown indication
     Dosage: UNK
     Route: 065
  36. CITALOPRAM [Concomitant]
     Active Substance: CITALOPRAM HYDROBROMIDE
     Indication: Product used for unknown indication
     Dosage: UNK
     Route: 065
  37. VALPROATE SODIUM [Concomitant]
     Active Substance: VALPROATE SODIUM
     Indication: Product used for unknown indication
     Dosage: UNK
     Route: 065
  38. ZIPRASIDONE MESYLATE [Concomitant]
     Active Substance: ZIPRASIDONE MESYLATE
     Indication: Product used for unknown indication
     Dosage: UNK
     Route: 065

REACTIONS (17)
  - Akathisia [Unknown]
  - Disinhibition [Unknown]
  - Dyslipidaemia [Unknown]
  - Euphoric mood [Unknown]
  - Hypertension [Unknown]
  - Increased appetite [Unknown]
  - Leukopenia [Unknown]
  - Obesity [Unknown]
  - Obsessive-compulsive disorder [Unknown]
  - Toxicity to various agents [Unknown]
  - Weight increased [Unknown]
  - Leukaemia [Unknown]
  - Suicide attempt [Unknown]
  - Antipsychotic drug level below therapeutic [Unknown]
  - Therapeutic product effect incomplete [Unknown]
  - Therapeutic product effect variable [Unknown]
  - Drug ineffective [Unknown]
